FAERS Safety Report 11934832 (Version 1)
Quarter: 2016Q1

REPORT INFORMATION
  Report Type: Spontaneous
  Country: US (occurrence: None)
  Receive Date: 20160120
  Receipt Date: 20160120
  Transmission Date: 20160526
  Serious: No
  Sender: FDA-Public Use
  Company Number: None

PATIENT
  Age: 42 Year
  Sex: Female
  Weight: 68.04 kg

DRUGS (8)
  1. XANAX [Concomitant]
     Active Substance: ALPRAZOLAM
  2. LAMICTAL [Concomitant]
     Active Substance: LAMOTRIGINE
  3. ADVIL [Concomitant]
     Active Substance: IBUPROFEN
  4. WELLBUTRIN [Concomitant]
     Active Substance: BUPROPION HYDROCHLORIDE
  5. BOTOX [Concomitant]
     Active Substance: ONABOTULINUMTOXINA
  6. AMPHETAMINE SALTS [Suspect]
     Active Substance: AMPHETAMINE ASPARTATE\AMPHETAMINE SULFATE\DEXTROAMPHETAMINE SACCHARATE\DEXTROAMPHETAMINE SULFATE
     Indication: ATTENTION DEFICIT/HYPERACTIVITY DISORDER
     Route: 048
     Dates: start: 20150115, end: 20160118
  7. TYLENOL [Concomitant]
     Active Substance: ACETAMINOPHEN
  8. TOPAMAX [Suspect]
     Active Substance: TOPIRAMATE

REACTIONS (5)
  - Drug ineffective [None]
  - Product substitution issue [None]
  - Dysgeusia [None]
  - Product formulation issue [None]
  - Product taste abnormal [None]

NARRATIVE: CASE EVENT DATE: 20160115
